FAERS Safety Report 25478728 (Version 5)
Quarter: 2025Q3

REPORT INFORMATION
  Report Type: Report from Study
  Country: US (occurrence: US)
  Receive Date: 20250625
  Receipt Date: 20250811
  Transmission Date: 20251021
  Serious: Yes (Hospitalization, Other)
  Sender: BOEHRINGER INGELHEIM
  Company Number: US-BoehringerIngelheim-2025-BI-020998

PATIENT
  Age: 80 Year
  Sex: Male
  Weight: 88.5 kg

DRUGS (25)
  1. OFEV [Suspect]
     Active Substance: NINTEDANIB
     Indication: Idiopathic pulmonary fibrosis
     Dates: start: 20250225, end: 20250516
  2. OFEV [Suspect]
     Active Substance: NINTEDANIB
     Indication: Interstitial lung disease
     Dates: start: 20250717
  3. Clopidogrel (clopidogreL (PLAVIX) 75 mg  tablet ) [Concomitant]
     Indication: Product used for unknown indication
  4. Aspirin (aspirin (ASPIRIN LOW DOSE)  81 mg TbEC) [Concomitant]
     Indication: Product used for unknown indication
  5. METHOTREXATE [Concomitant]
     Active Substance: METHOTREXATE
     Indication: Product used for unknown indication
  6. acetaminophen (TYLENOL)  500 mg tablet [Concomitant]
     Indication: Pain
  7. acetaminophen (TYLENOL)  500 mg tablet [Concomitant]
  8. ferrous sulfate (FEOSOL) 325  mg (65 mg iron) tablet [Concomitant]
     Indication: Product used for unknown indication
  9. furosemide (LASIX) 20 mg  tablet [Concomitant]
     Indication: Product used for unknown indication
  10. levothyroxine (SYNTHROID,  LEVOXYL) 25 mcg tablet [Concomitant]
     Indication: Product used for unknown indication
  11. Lidocaine 4 % crea/ Lidocaine [Concomitant]
     Indication: Pain
  12. loperamide (IMODIUM) 2 mg  capsule [Concomitant]
     Indication: Diarrhoea
  13. midodrine (PROAMITINE) 10  mg tablet [Concomitant]
     Indication: Product used for unknown indication
  14. Lidocaine(PF 1%) Xylocaine injection 0.5 ml [Concomitant]
     Indication: Product used for unknown indication
  15. multivitamin (THERAGRAN)  per tablet [Concomitant]
     Indication: Hypovitaminosis
  16. propafenone (RYTHMOL) 300  mg tablet [Concomitant]
  17. tocilizumab (ACTEMRA) 400  mg/20 mL (20 mg/mL) injection [Concomitant]
     Indication: Product used for unknown indication
  18. Cefuroxime 500 mg tablet [Concomitant]
     Indication: Product used for unknown indication
  19. Doxycycline 100 mg tablet [Concomitant]
     Indication: Product used for unknown indication
  20. pantoprazole (PROTONIX) 40 mg in sodium  chloride (PF) 0.9 % 10 rnL IV [Concomitant]
     Indication: Product used for unknown indication
  21. heparin (porcine) injection 5,000 Units [Concomitant]
     Indication: Product used for unknown indication
  22. docusate sodium (COLACE) capsule [Concomitant]
     Indication: Product used for unknown indication
  23. melatonin tablet 3mg [Concomitant]
     Indication: Product used for unknown indication
  24. prochlorperazine (COMPAZINE) tablet 10 mg [Concomitant]
     Indication: Product used for unknown indication
  25. prochlorperazine edisylate (COMPAZINE) injection  10 mg [Concomitant]
     Indication: Product used for unknown indication

REACTIONS (20)
  - Diverticulum intestinal [Unknown]
  - Sepsis [Recovered/Resolved]
  - Atrial fibrillation [Unknown]
  - Hypotension [Not Recovered/Not Resolved]
  - Blood loss anaemia [Unknown]
  - Pneumonia [Unknown]
  - Melaena [Unknown]
  - Heart failure with preserved ejection fraction [Unknown]
  - Chronic respiratory failure [Unknown]
  - Red blood cell count decreased [Recovered/Resolved]
  - Diarrhoea [Recovered/Resolved]
  - Haemoglobin decreased [Unknown]
  - Asthenia [Not Recovered/Not Resolved]
  - Dizziness [Not Recovered/Not Resolved]
  - Dizziness [Unknown]
  - Gastritis [Unknown]
  - Gastritis erosive [Unknown]
  - Skin infection [Unknown]
  - Skin laceration [Unknown]
  - Dyspnoea exertional [Unknown]

NARRATIVE: CASE EVENT DATE: 20250516
